FAERS Safety Report 11148465 (Version 1)
Quarter: 2015Q2

REPORT INFORMATION
  Report Type: Spontaneous
  Country: US (occurrence: None)
  Receive Date: 20150528
  Receipt Date: 20150528
  Transmission Date: 20150821
  Serious: Yes (Disabling)
  Sender: FDA-Public Use
  Company Number: None

PATIENT
  Age: 81 Year
  Sex: Female
  Weight: 63.5 kg

DRUGS (12)
  1. BENICAR [Suspect]
     Active Substance: OLMESARTAN MEDOXOMIL
     Indication: HYPERTENSION
     Route: 048
     Dates: start: 20150319, end: 20150429
  2. ANASTROZOL [Concomitant]
     Active Substance: ANASTROZOLE
  3. OCCASIONAL ALLEGRA [Concomitant]
  4. OXAZEPAM. [Concomitant]
     Active Substance: OXAZEPAM
  5. AMLODIPINE [Concomitant]
     Active Substance: AMLODIPINE BESYLATE
  6. ALLOPURINOL. [Concomitant]
     Active Substance: ALLOPURINOL
  7. ATENOLOL. [Concomitant]
     Active Substance: ATENOLOL
  8. LYRICA [Concomitant]
     Active Substance: PREGABALIN
  9. ATORVASTATIN [Concomitant]
     Active Substance: ATORVASTATIN
  10. IRBESARTIN _CHLOROTHALDONE [Concomitant]
  11. LEVOTHYROXINE [Concomitant]
     Active Substance: LEVOTHYROXINE
  12. VITAMIN D [Concomitant]
     Active Substance: CHOLECALCIFEROL

REACTIONS (1)
  - Diarrhoea [None]

NARRATIVE: CASE EVENT DATE: 20150320
